FAERS Safety Report 13406520 (Version 3)
Quarter: 2017Q2

REPORT INFORMATION
  Report Type: Other
  Country: US (occurrence: US)
  Receive Date: 20170405
  Receipt Date: 20170510
  Transmission Date: 20170830
  Serious: Yes (Other)
  Sender: FDA-Public Use
  Company Number: US-ARALEZ PHARMACEUTICALS R+D INC.-ARA-TP-US-2017-216

PATIENT
  Sex: Female
  Weight: 55.84 kg

DRUGS (14)
  1. CRESTOR [Suspect]
     Active Substance: ROSUVASTATIN CALCIUM
     Indication: BLOOD CHOLESTEROL
     Route: 048
     Dates: start: 2008, end: 2015
  2. TOPROL XL [Suspect]
     Active Substance: METOPROLOL SUCCINATE
     Indication: BLOOD PRESSURE MEASUREMENT
  3. RAMIPRIL. [Concomitant]
     Active Substance: RAMIPRIL
     Indication: BLOOD PRESSURE MEASUREMENT
  4. COMBIGAN [Concomitant]
     Active Substance: BRIMONIDINE TARTRATE\TIMOLOL MALEATE
     Indication: INTRAOCULAR PRESSURE INCREASED
     Dates: start: 1992
  5. OSCAL [Concomitant]
     Active Substance: CALCIUM CARBONATE
     Indication: OSTEOARTHRITIS
     Route: 048
     Dates: start: 2010
  6. NITROGLYCERIN. [Concomitant]
     Active Substance: NITROGLYCERIN
     Indication: CHEST PAIN
     Route: 048
  7. RAMIPRIL. [Concomitant]
     Active Substance: RAMIPRIL
     Indication: CARDIAC DISORDER
     Route: 048
     Dates: start: 2007
  8. CENTRUM SILVER [Concomitant]
     Active Substance: MINERALS\VITAMINS
     Indication: VITAMIN SUPPLEMENTATION
     Route: 048
     Dates: start: 2006
  9. LIPITOR [Concomitant]
     Active Substance: ATORVASTATIN CALCIUM
     Indication: PRODUCT USED FOR UNKNOWN INDICATION
  10. TOPROL XL [Suspect]
     Active Substance: METOPROLOL SUCCINATE
     Indication: CARDIAC DISORDER
     Route: 048
     Dates: start: 2006
  11. PROBIOTIC [Concomitant]
     Active Substance: PROBIOTICS NOS
     Indication: SUPPLEMENTATION THERAPY
     Route: 048
     Dates: start: 2016
  12. VITAMIN D [Concomitant]
     Active Substance: CHOLECALCIFEROL
     Indication: VITAMIN D DEFICIENCY
     Route: 048
     Dates: start: 2014
  13. COMBIGAN [Concomitant]
     Active Substance: BRIMONIDINE TARTRATE\TIMOLOL MALEATE
     Indication: GLAUCOMA
  14. ATORVASTATIN [Concomitant]
     Active Substance: ATORVASTATIN
     Indication: PRODUCT USED FOR UNKNOWN INDICATION

REACTIONS (14)
  - Cardiac disorder [Unknown]
  - Stent placement [Unknown]
  - Vascular graft [Unknown]
  - Catheterisation cardiac [Unknown]
  - Diverticulitis [Unknown]
  - Dyspnoea [Unknown]
  - Myalgia [Unknown]
  - Headache [Unknown]
  - Arterial occlusive disease [Unknown]
  - Muscular weakness [Recovered/Resolved]
  - Hypercholesterolaemia [Unknown]
  - Glaucoma [Unknown]
  - Pain [Recovered/Resolved]
  - Intraocular pressure increased [Unknown]

NARRATIVE: CASE EVENT DATE: 1992
